FAERS Safety Report 24557169 (Version 3)
Quarter: 2024Q4

REPORT INFORMATION
  Report Type: Spontaneous
  Country: JP (occurrence: JP)
  Receive Date: 20241028
  Receipt Date: 20241213
  Transmission Date: 20250115
  Serious: Yes (Hospitalization, Other)
  Sender: GENMAB
  Company Number: JP-GENMAB-2024-03862

PATIENT
  Age: 75 Year
  Sex: Female
  Weight: 49.8 kg

DRUGS (8)
  1. EPKINLY [Suspect]
     Active Substance: EPCORITAMAB-BYSP
     Indication: Diffuse large B-cell lymphoma refractory
     Dosage: 0.16 MILLIGRAM, SINGLE
     Route: 058
     Dates: start: 20241008, end: 20241008
  2. EPKINLY [Suspect]
     Active Substance: EPCORITAMAB-BYSP
     Dosage: 0.8 MILLIGRAM, SINGLE
     Route: 058
     Dates: start: 20241015, end: 20241015
  3. EPKINLY [Suspect]
     Active Substance: EPCORITAMAB-BYSP
     Dosage: 48 MILLIGRAM
     Route: 058
     Dates: start: 20241022
  4. DECADRON [Concomitant]
     Active Substance: DEXAMETHASONE
     Indication: Prophylaxis
     Dosage: 19.8 MILLIGRAM, INTRAVENOUS INJECTION, ON DAY 1 OF ADMINISTRATION OF EPKINLY, FROM THE FIRST TO THE
     Route: 042
     Dates: start: 20241008, end: 20241022
  5. DECADRON [Concomitant]
     Active Substance: DEXAMETHASONE
     Dosage: 16 MILLIGRAM, ON DAY 2, DAY 3 AND DAY 4 OF ADMINISTRATION OF EPKINLY, FROM THE FIRST TO THE THIRD AD
     Route: 048
     Dates: start: 20241009, end: 20241025
  6. POLARAMINE [Concomitant]
     Active Substance: DEXCHLORPHENIRAMINE MALEATE
     Indication: Prophylaxis
     Dosage: 2 MILLIGRAM, ON DAY 1 OF ADMINISTRATION OF EPKINLY, FROM THE FIRST TO THE THIRD ADMINISTRATION IN CY
     Dates: start: 20241008, end: 20241022
  7. CALONAL [Concomitant]
     Active Substance: ACETAMINOPHEN
     Indication: Prophylaxis
     Dosage: 800 MILLIGRAM, ON DAY 1 OF ADMINISTRATION OF EPKINLY, FROM THE FIRST TO THE THIRD ADMINISTRATION IN
     Dates: start: 20241008, end: 20241022
  8. DEXTROSE\SODIUM CHLORIDE\SODIUM LACTATE [Concomitant]
     Active Substance: DEXTROSE\SODIUM CHLORIDE\SODIUM LACTATE
     Indication: Prophylaxis
     Dosage: 2000 MILLILITER, ON DAY 0, DAY 1, AND DAY 2 OF ADMINISTRATION OF EPKINLY, FROM THE FIRST TO THE THIR
     Dates: start: 20241007, end: 20241023

REACTIONS (5)
  - Epilepsy [Recovering/Resolving]
  - Diffuse large B-cell lymphoma refractory [Unknown]
  - Haemophagocytic lymphohistiocytosis [Unknown]
  - Platelet count decreased [Not Recovered/Not Resolved]
  - Cytokine release syndrome [Not Recovered/Not Resolved]

NARRATIVE: CASE EVENT DATE: 20240101
